FAERS Safety Report 16761239 (Version 1)
Quarter: 2019Q3

REPORT INFORMATION
  Report Type: Spontaneous
  Country: US (occurrence: US)
  Receive Date: 20190830
  Receipt Date: 20190830
  Transmission Date: 20191005
  Serious: No
  Sender: FDA-Public Use
  Company Number: US-ANIPHARMA-2019-US-012837

PATIENT
  Age: 63 Year
  Sex: Female
  Weight: 47.63 kg

DRUGS (1)
  1. ARIMIDEX [Suspect]
     Active Substance: ANASTROZOLE
     Indication: NEOPLASM MALIGNANT
     Dosage: 1 MG
     Route: 048
     Dates: start: 20190704

REACTIONS (1)
  - Pain [Not Recovered/Not Resolved]

NARRATIVE: CASE EVENT DATE: 20190706
